FAERS Safety Report 10482444 (Version 5)
Quarter: 2015Q1

REPORT INFORMATION
  Report Type: Report from Study
  Country: US (occurrence: US)
  Receive Date: 20140929
  Receipt Date: 20150317
  Transmission Date: 20150720
  Serious: Yes (Hospitalization, Other)
  Sender: FDA-Public Use
  Company Number: US-SA-2014SA131080

PATIENT
  Age: 71 Year
  Sex: Female

DRUGS (2)
  1. SYNTHROID [Concomitant]
     Active Substance: LEVOTHYROXINE SODIUM
  2. AUBAGIO [Suspect]
     Active Substance: TERIFLUNOMIDE
     Indication: MULTIPLE SCLEROSIS
     Route: 048
     Dates: start: 20140712, end: 20141215

REACTIONS (10)
  - Choking [Unknown]
  - Decreased appetite [Unknown]
  - Kidney infection [Recovering/Resolving]
  - Renal failure [Unknown]
  - Mobility decreased [Unknown]
  - Nephrolithiasis [Not Recovered/Not Resolved]
  - Asthenia [Unknown]
  - Weight decreased [Unknown]
  - Multiple sclerosis [Unknown]
  - Eating disorder [Unknown]
